FAERS Safety Report 12574434 (Version 1)
Quarter: 2016Q3

REPORT INFORMATION
  Report Type: Spontaneous
  Country: US (occurrence: None)
  Receive Date: 20160719
  Receipt Date: 20160719
  Transmission Date: 20161109
  Serious: Yes (Hospitalization)
  Sender: FDA-Public Use
  Company Number: None

PATIENT
  Age: 65 Year
  Sex: Female

DRUGS (15)
  1. ZOLPIDEM [Concomitant]
     Active Substance: ZOLPIDEM\ZOLPIDEM TARTRATE
  2. ASPIRIN. [Concomitant]
     Active Substance: ASPIRIN
  3. AMBIEN [Concomitant]
     Active Substance: ZOLPIDEM TARTRATE
  4. LEVOXYL [Concomitant]
     Active Substance: LEVOTHYROXINE SODIUM
  5. METOPROLO TAR [Concomitant]
  6. FUROSEMIDE. [Concomitant]
     Active Substance: FUROSEMIDE
  7. COREG [Concomitant]
     Active Substance: CARVEDILOL
  8. FLUTICASEON [Concomitant]
  9. GLEEVEC [Suspect]
     Active Substance: IMATINIB MESYLATE
     Indication: NEOPLASM MALIGNANT
     Dosage: 1 TAB DAILY PO
     Route: 048
     Dates: start: 201306
  10. WARFARIN [Concomitant]
     Active Substance: WARFARIN
  11. FOSINOPRIL [Concomitant]
     Active Substance: FOSINOPRIL
  12. KLOR-CON [Concomitant]
     Active Substance: POTASSIUM CHLORIDE
  13. VITAMIN D [Concomitant]
     Active Substance: CHOLECALCIFEROL
  14. SIMVASTATIN. [Concomitant]
     Active Substance: SIMVASTATIN
  15. DILTIAZEM. [Concomitant]
     Active Substance: DILTIAZEM

REACTIONS (8)
  - Hair disorder [None]
  - Diarrhoea [None]
  - Skin disorder [None]
  - Nausea [None]
  - Premature ageing [None]
  - Fluid retention [None]
  - Insomnia [None]
  - Cardiac disorder [None]

NARRATIVE: CASE EVENT DATE: 20160621
